FAERS Safety Report 11146365 (Version 1)
Quarter: 2015Q2

REPORT INFORMATION
  Report Type: Spontaneous
  Country: GB (occurrence: None)
  Receive Date: 20150526
  Receipt Date: 20150526
  Transmission Date: 20150821
  Serious: Yes (Other)
  Sender: FDA-Public Use
  Company Number: GB-DEXPHARM-20150314

PATIENT
  Age: 72 Year
  Sex: Female

DRUGS (4)
  1. OMEPRAZOLE (BATCH ZC14047) (NOT DEXCELS BRAND [Suspect]
     Active Substance: OMEPRAZOLE
     Indication: DYSPEPSIA
     Dosage: 20 MG - TAKE ONE OR TWO EACH DAY
     Route: 048
     Dates: start: 20150204, end: 20150425
  2. BUPRENORPHINE HYDROCHLORIDE. [Concomitant]
     Active Substance: BUPRENORPHINE HYDROCHLORIDE
  3. MAGNESIUM HYDROXIDE. [Concomitant]
     Active Substance: MAGNESIUM HYDROXIDE
  4. PARACETAMOL [Concomitant]
     Active Substance: ACETAMINOPHEN

REACTIONS (3)
  - Nausea [None]
  - Constipation [None]
  - Dysgeusia [None]

NARRATIVE: CASE EVENT DATE: 20150402
